FAERS Safety Report 17003555 (Version 2)
Quarter: 2020Q4

REPORT INFORMATION
  Report Type: Spontaneous
  Country: JP (occurrence: JP)
  Receive Date: 20191107
  Receipt Date: 20201216
  Transmission Date: 20210113
  Serious: Yes (Other)
  Sender: FDA-Public Use
  Company Number: JP-SUN PHARMACEUTICAL INDUSTRIES LTD-2019R1-226837

PATIENT
  Age: 47 Year
  Sex: Female

DRUGS (4)
  1. CALCIUM FOLINAT [Suspect]
     Active Substance: LEUCOVORIN CALCIUM
     Indication: ADENOCARCINOMA PANCREAS
     Dosage: 200 MILLIGRAM/SQ. METER
     Route: 065
     Dates: start: 201610
  2. IRINOTECAN [Suspect]
     Active Substance: IRINOTECAN
     Indication: ADENOCARCINOMA PANCREAS
     Dosage: 150 MILLIGRAM/SQ. METER
     Route: 065
     Dates: start: 201610
  3. FLUOROURACIL. [Suspect]
     Active Substance: FLUOROURACIL
     Indication: ADENOCARCINOMA PANCREAS
     Dosage: 2400 MILLIGRAM/SQ. METER
     Route: 065
     Dates: start: 201610
  4. OXALIPLATIN. [Suspect]
     Active Substance: OXALIPLATIN
     Indication: ADENOCARCINOMA PANCREAS
     Dosage: 85 MILLIGRAM/SQ. METER
     Route: 065
     Dates: start: 201610

REACTIONS (1)
  - Metastases to breast [Recovered/Resolved]
